FAERS Safety Report 5850814-6 (Version None)
Quarter: 2008Q3

REPORT INFORMATION
  Report Type: 
  Country: None (occurrence: None)
  Receive Date: 20080820
  Receipt Date: 20080813
  Transmission Date: 20090109
  Serious: Yes (Other)
  Sender: FDA-Public Use
  Company Number: US-BAYER-200827121NA

PATIENT
  Age: 83 Year
  Sex: Female
  Weight: 49 kg

DRUGS (2)
  1. AVELOX [Suspect]
     Indication: PNEUMONIA
     Dosage: TOTAL DAILY DOSE: 400 MG  UNIT DOSE: 400 MG
     Route: 048
     Dates: start: 20080123, end: 20080128
  2. AZMACORT [Concomitant]
     Dosage: TOTAL DAILY DOSE: 6 PUFF
     Dates: start: 20071101

REACTIONS (4)
  - ARTHRALGIA [None]
  - BONE PAIN [None]
  - RASH [None]
  - VASCULITIS [None]
